FAERS Safety Report 5954712-9 (Version None)
Quarter: 2008Q4

REPORT INFORMATION
  Report Type: 
  Country: None (occurrence: None)
  Receive Date: 20081117
  Receipt Date: 20081112
  Transmission Date: 20090506
  Serious: Yes (Death, Hospitalization)
  Sender: FDA-Public Use
  Company Number: PHHY2008BR28107

PATIENT
  Age: 78 Year
  Sex: Male

DRUGS (3)
  1. FORASEQ [Suspect]
     Dosage: 12/200 MCG, TWICE A DAY
  2. DIOVAN [Suspect]
     Indication: BLOOD PRESSURE
     Dosage: 80 MG, QD
     Route: 048
  3. BAMIFIX [Concomitant]
     Indication: EMPHYSEMA
     Dosage: UNK
     Route: 048

REACTIONS (5)
  - CARDIO-RESPIRATORY ARREST [None]
  - CONDITION AGGRAVATED [None]
  - DYSPNOEA [None]
  - EMPHYSEMA [None]
  - ORGAN FAILURE [None]
